FAERS Safety Report 5452294-1 (Version None)
Quarter: 2007Q3

REPORT INFORMATION
  Report Type: 
  Country: None (occurrence: None)
  Receive Date: 20070912
  Receipt Date: 20070912
  Transmission Date: 20080115
  Serious: Yes (Life-Threatening)
  Sender: FDA-Public Use
  Company Number: None

PATIENT
  Age: 48 Year
  Sex: Male
  Weight: 63.5036 kg

DRUGS (1)
  1. PROTOPIC [Suspect]
     Indication: ECZEMA
     Dosage: APPLY TWICE A DAY TOP
     Route: 061
     Dates: start: 20060701, end: 20070301

REACTIONS (1)
  - NON-HODGKIN'S LYMPHOMA [None]
